FAERS Safety Report 8344931-9 (Version None)
Quarter: 2012Q2

REPORT INFORMATION
  Report Type: 
  Country: None (occurrence: None)
  Receive Date: 20120508
  Receipt Date: 20120427
  Transmission Date: 20120825
  Serious: Yes (Hospitalization, Disabling, Other)
  Sender: FDA-Public Use
  Company Number: US-MERCK-1203USA02988

PATIENT
  Age: 28 Year
  Sex: Male
  Weight: 126 kg

DRUGS (6)
  1. PREDNISONE [Concomitant]
     Indication: MYASTHENIA GRAVIS
     Dosage: 15 TABS FOR 30 DAY SUPPLY
     Route: 048
     Dates: start: 20060601, end: 20061001
  2. MESTINON [Concomitant]
     Indication: MYASTHENIA GRAVIS
     Route: 048
     Dates: start: 19920401
  3. FOSAMAX [Suspect]
     Indication: OSTEOPOROSIS
     Route: 048
     Dates: start: 20020101, end: 20110101
  4. PREDNISONE [Concomitant]
     Dosage: VARIED FROM 5 MG TO 20 MG TABLETS
     Route: 048
     Dates: start: 20060901, end: 20070401
  5. ALENDRONATE SODIUM [Suspect]
     Route: 065
     Dates: start: 20080401
  6. MYCOPHENOLATE MOFETIL (CELLCEPT) [Concomitant]
     Indication: MYASTHENIA GRAVIS
     Route: 065
     Dates: start: 19870101

REACTIONS (43)
  - HYPERTENSION [None]
  - FRACTURE NONUNION [None]
  - VITAMIN D DEFICIENCY [None]
  - DIARRHOEA [None]
  - ABSCESS LIMB [None]
  - FOOT FRACTURE [None]
  - STRABISMUS [None]
  - FOOT DEFORMITY [None]
  - FATIGUE [None]
  - OXYGEN SATURATION ABNORMAL [None]
  - COUGH [None]
  - ANXIETY [None]
  - EYE DISORDER [None]
  - FALL [None]
  - PILONIDAL CYST [None]
  - SNORING [None]
  - SLEEP DISORDER [None]
  - DIABETES MELLITUS [None]
  - VITAMIN B12 DEFICIENCY [None]
  - BLOOD GLUCOSE INCREASED [None]
  - DYSPNOEA [None]
  - CELLULITIS [None]
  - HYPERGLYCAEMIA [None]
  - POLLAKIURIA [None]
  - SPINAL CORD COMPRESSION [None]
  - RASH [None]
  - LOW TURNOVER OSTEOPATHY [None]
  - EYELID DISORDER [None]
  - DEPRESSION [None]
  - LUMBAR VERTEBRAL FRACTURE [None]
  - TACHYCARDIA [None]
  - CHOKING [None]
  - OTITIS EXTERNA [None]
  - LUNG DISORDER [None]
  - FEMUR FRACTURE [None]
  - DIABETIC FOOT [None]
  - TINEA VERSICOLOUR [None]
  - CATARACT SUBCAPSULAR [None]
  - GASTROOESOPHAGEAL REFLUX DISEASE [None]
  - HYPERCHOLESTEROLAEMIA [None]
  - OTITIS MEDIA ACUTE [None]
  - BACK PAIN [None]
  - CHEST PAIN [None]
